FAERS Safety Report 5742011-X (Version None)
Quarter: 2008Q2

REPORT INFORMATION
  Report Type: 
  Country: None (occurrence: None)
  Receive Date: 20080519
  Receipt Date: 20080513
  Transmission Date: 20081010
  Serious: Yes (Other)
  Sender: FDA-Public Use
  Company Number: US-MERCK-0805USA02752

PATIENT
  Age: 48 Year
  Sex: Female

DRUGS (4)
  1. SINGULAIR [Suspect]
     Route: 048
  2. FEMARA [Concomitant]
     Route: 065
  3. AVAPRO [Concomitant]
     Route: 065
  4. CLARITIN 24 HOUR [Suspect]
     Route: 048

REACTIONS (2)
  - PARAESTHESIA [None]
  - VISION BLURRED [None]
